FAERS Safety Report 5333307-4 (Version None)
Quarter: 2007Q2

REPORT INFORMATION
  Report Type: 
  Country: None (occurrence: None)
  Receive Date: 20070524
  Receipt Date: 20070517
  Transmission Date: 20071010
  Serious: Yes (Hospitalization)
  Sender: FDA-Public Use
  Company Number: US-JNJFOC-20070404889

PATIENT
  Age: 44 Year
  Sex: Male

DRUGS (4)
  1. INVEGA [Suspect]
     Indication: SCHIZOPHRENIA
     Route: 048
  2. RISPERDAL [Concomitant]
     Indication: SCHIZOPHRENIA
     Route: 048
  3. COGENTIN [Concomitant]
     Route: 048
  4. COGENTIN [Concomitant]
     Route: 048

REACTIONS (2)
  - DYSTONIA [None]
  - NEUROLEPTIC MALIGNANT SYNDROME [None]
